FAERS Safety Report 21566913 (Version 1)
Quarter: 2022Q4

REPORT INFORMATION
  Report Type: Spontaneous
  Country: US (occurrence: None)
  Receive Date: 20221107
  Receipt Date: 20221107
  Transmission Date: 20230113
  Serious: Yes (Other)
  Sender: FDA-Public Use
  Company Number: None

PATIENT
  Age: 52 Year
  Sex: Female
  Weight: 43.2 kg

DRUGS (15)
  1. TRILEPTAL [Suspect]
     Active Substance: OXCARBAZEPINE
     Indication: Seizure
     Dates: start: 20221102, end: 20221106
  2. TRILEPTAL [Suspect]
     Active Substance: OXCARBAZEPINE
     Indication: Muscle spasms
  3. DUPIXENT [Concomitant]
     Active Substance: DUPILUMAB
  4. ENBREL [Concomitant]
     Active Substance: ETANERCEPT
  5. DROXIDOPA [Concomitant]
     Active Substance: DROXIDOPA
  6. SINGULAIR [Concomitant]
     Active Substance: MONTELUKAST SODIUM
  7. COLCHICINE [Concomitant]
     Active Substance: COLCHICINE
  8. VICODIN [Concomitant]
     Active Substance: ACETAMINOPHEN\HYDROCODONE BITARTRATE
  9. CLONAZEPAM [Concomitant]
     Active Substance: CLONAZEPAM
  10. ALVESCO [Concomitant]
     Active Substance: CICLESONIDE
  11. ALBUTEROL [Concomitant]
     Active Substance: ALBUTEROL
  12. CORLANOR [Concomitant]
     Active Substance: IVABRADINE HYDROCHLORIDE
  13. BENTYL [Concomitant]
     Active Substance: DICYCLOMINE HYDROCHLORIDE
  14. SODIUM CHLORIDE [Concomitant]
     Active Substance: SODIUM CHLORIDE
  15. VITAMIN D [Concomitant]
     Active Substance: VITAMIN D NOS

REACTIONS (2)
  - Anaphylactic reaction [None]
  - Syncope [None]

NARRATIVE: CASE EVENT DATE: 20221106
